FAERS Safety Report 13696898 (Version 1)
Quarter: 2017Q2

REPORT INFORMATION
  Report Type: Spontaneous
  Country: US (occurrence: US)
  Receive Date: 20170627
  Receipt Date: 20170627
  Transmission Date: 20170830
  Serious: Yes (Disabling)
  Sender: FDA-Public Use
  Company Number: None

PATIENT
  Age: 71 Year
  Sex: Female
  Weight: 63 kg

DRUGS (6)
  1. KLONOPIN [Suspect]
     Active Substance: CLONAZEPAM
     Indication: GENERALISED ANXIETY DISORDER
     Dosage: ?          QUANTITY:.25 TABLET(S);?
     Route: 048
     Dates: start: 19920131, end: 20120707
  2. STOOL SOFTENER (DOCUSATE) [Concomitant]
     Active Substance: DOCUSATE
  3. MILK OF MAGNESIA [Concomitant]
     Active Substance: MAGNESIUM HYDROXIDE
  4. TRAZEDONE [Concomitant]
  5. ASPIRIN. [Concomitant]
     Active Substance: ASPIRIN
  6. IMIPRIMINE [Concomitant]

REACTIONS (14)
  - Fatigue [None]
  - Panic attack [None]
  - Depersonalisation/derealisation disorder [None]
  - Balance disorder [None]
  - Scar [None]
  - Sensory loss [None]
  - Emotional distress [None]
  - Suicidal ideation [None]
  - Derealisation [None]
  - Pain [None]
  - Withdrawal syndrome [None]
  - Tooth disorder [None]
  - Thermal burn [None]
  - Sensory disturbance [None]

NARRATIVE: CASE EVENT DATE: 19900131
